FAERS Safety Report 8037811-X (Version None)
Quarter: 2012Q1

REPORT INFORMATION
  Report Type: 
  Country: None (occurrence: None)
  Receive Date: 20120111
  Receipt Date: 20120102
  Transmission Date: 20120608
  Serious: No
  Sender: FDA-Public Use
  Company Number: BR-B.I. PHARMACEUTICALS,INC./RIDGEFIELD-2012-BR-00020BR

PATIENT
  Sex: Male

DRUGS (7)
  1. LISINOPRIL [Concomitant]
     Indication: BLOOD PRESSURE INCREASED
  2. VYTORIN [Concomitant]
     Indication: BLOOD CHOLESTEROL
  3. COMBINED BACTERIAL C MENINGOCOCCAL VACCINE [Concomitant]
     Indication: IMMUNISATION
     Dates: start: 20111214
  4. VYTORIN [Concomitant]
     Indication: BLOOD TRIGLYCERIDES
  5. TETANUS VACCINE [Concomitant]
     Indication: IMMUNISATION
     Dates: start: 20111212
  6. TRAYENTA [Suspect]
     Indication: TYPE 2 DIABETES MELLITUS
     Dosage: 5 MG
     Route: 048
     Dates: start: 20111203, end: 20120101
  7. METFORMIN HCL [Concomitant]
     Indication: DIABETES MELLITUS

REACTIONS (4)
  - LIP SWELLING [None]
  - SKIN WRINKLING [None]
  - SWELLING FACE [None]
  - LOCAL SWELLING [None]
